FAERS Safety Report 5267987-9 (Version None)
Quarter: 2007Q1

REPORT INFORMATION
  Report Type: 
  Country: None (occurrence: None)
  Receive Date: 20061214
  Receipt Date: 20060420
  Transmission Date: 20070707
  Serious: Yes (Other)
  Sender: FDA-Public Use
  Company Number: 2006054242

PATIENT
  Age: 27 Year
  Sex: Female
  Weight: 70.3075 kg

DRUGS (3)
  1. XANAX [Suspect]
     Indication: PANIC ATTACK
     Dosage: 9.5 MG (1 MG)
     Dates: start: 20030101
  2. ORTHO TRI-CYCLE (ETHINYLESTRADIOL, NORGESTIMATE) [Concomitant]
  3. ALLEGRA-D 12 HOUR [Concomitant]

REACTIONS (2)
  - DRUG DEPENDENCE [None]
  - HERPES VIRUS INFECTION [None]
